FAERS Safety Report 18824991 (Version 1)
Quarter: 2021Q1

REPORT INFORMATION
  Report Type: Spontaneous
  Country: US (occurrence: US)
  Receive Date: 20210202
  Receipt Date: 20210202
  Transmission Date: 20210419
  Serious: No
  Sender: FDA-Public Use
  Company Number: US-PFIZER INC-2021094207

PATIENT
  Age: 48 Year
  Sex: Female

DRUGS (2)
  1. XELJANZ [Suspect]
     Active Substance: TOFACITINIB CITRATE
     Indication: ALOPECIA AREATA
  2. XELJANZ [Suspect]
     Active Substance: TOFACITINIB CITRATE
     Indication: ALOPECIA TOTALIS
     Dosage: 10 MG, 2X/DAY

REACTIONS (7)
  - Off label use [Unknown]
  - Drug effective for unapproved indication [Unknown]
  - Skin discomfort [Unknown]
  - Pain in extremity [Unknown]
  - Arthropathy [Unknown]
  - Condition aggravated [Unknown]
  - Rash [Unknown]
